FAERS Safety Report 4426278-6 (Version None)
Quarter: 2004Q3

REPORT INFORMATION
  Report Type: 
  Country: None (occurrence: None)
  Receive Date: 20040811
  Receipt Date: 20040728
  Transmission Date: 20050211
  Serious: Yes (Other)
  Sender: FDA-Public Use
  Company Number: 8006916

PATIENT
  Age: 5 Year
  Sex: Female
  Weight: 17.4 kg

DRUGS (3)
  1. KEPPRA [Suspect]
     Indication: EPILEPSY
     Dosage: 125 MG/D
     Dates: start: 20040719, end: 20040726
  2. KEPPRA [Suspect]
     Indication: EPILEPSY
     Dosage: 250 MG/D
     Dates: start: 20040727, end: 20040727
  3. FRISIUM [Concomitant]

REACTIONS (2)
  - EXANTHEM [None]
  - URTICARIA [None]
